FAERS Safety Report 11618785 (Version 1)
Quarter: 2015Q4

REPORT INFORMATION
  Report Type: Spontaneous
  Country: US (occurrence: None)
  Receive Date: 20151012
  Receipt Date: 20151012
  Transmission Date: 20160304
  Serious: Yes (Other)
  Sender: FDA-Public Use
  Company Number: ADR-2015-00081

PATIENT
  Age: 56 Year
  Sex: Female

DRUGS (2)
  1. BACLOFEN INTRATHECAL - 5000 MCG/ML [Suspect]
     Active Substance: BACLOFEN
     Indication: PAIN
     Dosage: 750.5 MCG/DAY
  2. DILAUDID [Suspect]
     Active Substance: HYDROMORPHONE HYDROCHLORIDE
     Dosage: 15.01 MG/DAY

REACTIONS (13)
  - Weight decreased [None]
  - Medical device site pain [None]
  - Gastrointestinal disorder [None]
  - Blood blister [None]
  - Pain [None]
  - Diarrhoea [None]
  - Drug withdrawal syndrome [None]
  - Malaise [None]
  - Medical device site vesicles [None]
  - Device occlusion [None]
  - Therapeutic response decreased [None]
  - Burning sensation [None]
  - Medical device site ulcer [None]
